FAERS Safety Report 9563426 (Version 1)
Quarter: 2013Q1

REPORT INFORMATION
  Report Type: Spontaneous
  Country: US (occurrence: None)
  Receive Date: 20121218
  Receipt Date: 20121218
  Transmission Date: 20140127
  Serious: Yes (Death)
  Sender: FDA-Public Use
  Company Number: PHEH2011US008885

PATIENT
  Age: 57 Year
  Sex: Female

DRUGS (1)
  1. ZOMETA (ZOLEDRONATE) UNKNOWN [Suspect]
     Indication: METASTASES TO BONE
     Dosage: 4MG/ 5ML, EVERY 4 WEEK

REACTIONS (2)
  - Neoplasm progression [None]
  - Neoplasm malignant [None]
